FAERS Safety Report 18098980 (Version 1)
Quarter: 2020Q3

REPORT INFORMATION
  Report Type: Spontaneous
  Country: RU (occurrence: RU)
  Receive Date: 20200731
  Receipt Date: 20200731
  Transmission Date: 20201103
  Serious: Yes (Hospitalization)
  Sender: FDA-Public Use
  Company Number: RU-ASTRAZENECA-2020SE92818

PATIENT
  Age: 26 Year
  Sex: Female
  Weight: 54 kg

DRUGS (12)
  1. DEXAMETHONE [Concomitant]
     Dosage: 12.0ML UNKNOWN
     Route: 042
  2. CHLOROPYRAMINE [Concomitant]
     Active Substance: CHLOROPYRAMINE
     Dosage: 2.0ML UNKNOWN
     Route: 030
  3. FROMILID UNO [Suspect]
     Active Substance: CLARITHROMYCIN
     Indication: GASTROINTESTINAL ULCER
     Route: 048
     Dates: start: 20200307
  4. OMEPRAZOLE. [Concomitant]
     Active Substance: OMEPRAZOLE
     Route: 065
  5. AMOXICILLIN. [Suspect]
     Active Substance: AMOXICILLIN
     Indication: GASTROINTESTINAL ULCER
     Route: 048
     Dates: start: 20200307
  6. PREDNISOLONE. [Concomitant]
     Active Substance: PREDNISOLONE
     Dosage: 60.0MG UNKNOWN
     Route: 042
  7. CALCIUM CHLORIDE. [Concomitant]
     Active Substance: CALCIUM CHLORIDE
     Dosage: 250.0ML UNKNOWN
     Route: 042
  8. CHLOROPYRAMINE [Concomitant]
     Active Substance: CHLOROPYRAMINE
     Route: 048
  9. DIPROSPAN [Concomitant]
     Active Substance: BETAMETHASONE DIPROPIONATE\BETAMETHASONE SODIUM PHOSPHATE
     Dosage: 2.0ML UNKNOWN
     Route: 030
  10. PREDNISOLONE. [Concomitant]
     Active Substance: PREDNISOLONE
     Dosage: 90.0MG UNKNOWN
     Route: 042
  11. DIMEDROL [Concomitant]
     Active Substance: DIPHENHYDRAMINE
     Dosage: 2.0ML UNKNOWN
     Route: 030
  12. NEXIUM [Suspect]
     Active Substance: ESOMEPRAZOLE MAGNESIUM
     Indication: GASTROINTESTINAL ULCER
     Route: 048
     Dates: start: 20200307

REACTIONS (6)
  - Rash [Recovering/Resolving]
  - Erythema [Recovering/Resolving]
  - Angioedema [Recovering/Resolving]
  - Toxic skin eruption [Recovering/Resolving]
  - Body temperature increased [Recovering/Resolving]
  - Laboratory test abnormal [Recovering/Resolving]

NARRATIVE: CASE EVENT DATE: 20200314
